FAERS Safety Report 15289469 (Version 16)
Quarter: 2019Q4

REPORT INFORMATION
  Report Type: Report from Study
  Country: MX (occurrence: MX)
  Receive Date: 20180817
  Receipt Date: 20191018
  Transmission Date: 20200122
  Serious: Yes (Hospitalization, Other)
  Sender: FDA-Public Use
  Company Number: PHHY2018MX072744

PATIENT
  Age: 58 Year
  Sex: Male
  Weight: 88 kg

DRUGS (23)
  1. FUROSEMIDE. [Concomitant]
     Active Substance: FUROSEMIDE
     Indication: DIURETIC THERAPY
     Dosage: 1 DF, QD
     Route: 048
     Dates: start: 201805
  2. ENTRESTO [Suspect]
     Active Substance: SACUBITRIL\VALSARTAN
     Indication: CARDIAC DISORDER
     Dosage: 2 DF, QD
     Route: 048
     Dates: start: 201802
  3. ACETYLSALICYLIC ACID [Concomitant]
     Active Substance: ASPIRIN
     Dosage: 1 DF (100 MG), QD, STOPPED 1 YEAR AGO
     Route: 065
  4. SPIRONOLACTONE. [Concomitant]
     Active Substance: SPIRONOLACTONE
     Indication: DIURETIC THERAPY
     Dosage: 1 DF, QD
     Route: 048
     Dates: start: 201805
  5. ENTRESTO [Suspect]
     Active Substance: SACUBITRIL\VALSARTAN
     Dosage: 0.5 DF (100 MG), Q12H
     Route: 048
  6. METOPROLOL. [Concomitant]
     Active Substance: METOPROLOL
     Indication: BLOOD PRESSURE ABNORMAL
     Dosage: 0.25 DF (1/4 OF 100 MG TABLET), QD (IN THE MORNING), STARTED 3 YEARS AGO
     Route: 048
  7. MICCIL [Concomitant]
     Indication: DIURETIC THERAPY
     Dosage: 1 DF, QD (START DATE: APPROXIMATELY 1 YEAR AND A HALF)
     Route: 048
     Dates: start: 201805
  8. ATENOLOL. [Concomitant]
     Active Substance: ATENOLOL
     Dosage: 0.5 DF (50 MG), QD (IN THE MORNING), STARTED 2 YEARS AGO AND STOPPED 1 YEAR AGO
     Route: 048
  9. TRAYENTA [Concomitant]
     Active Substance: LINAGLIPTIN
     Indication: DIABETES MELLITUS
     Dosage: 5 MG, QD
     Route: 048
     Dates: start: 201806
  10. OXYGEN. [Concomitant]
     Active Substance: OXYGEN
     Indication: PRODUCT USED FOR UNKNOWN INDICATION
     Dosage: UNK (AT NIGHTS)
     Route: 055
  11. ETURION [Concomitant]
     Active Substance: ATORVASTATIN CALCIUM
     Indication: BLOOD CHOLESTEROL ABNORMAL
     Dosage: 40 MG (1 OR 2), QN (START DATE: APPROXIMATELY 1 YEAR AND A HALF)
     Route: 048
  12. RIVAROXABAN [Concomitant]
     Active Substance: RIVAROXABAN
     Indication: ANTICOAGULANT THERAPY
     Dosage: 1 DF (20 MG), Q24H (STARTED 2 AND HALF YEARS AGO)
     Route: 048
  13. ENTRESTO [Suspect]
     Active Substance: SACUBITRIL\VALSARTAN
     Dosage: 0.5 DF (100 MG), BID (IN MORNING AND AT NIGHT), STARTED MORE THAN 2 YEARS AGO
     Route: 048
     Dates: start: 201805
  14. ATORVASTATIN [Suspect]
     Active Substance: ATORVASTATIN
     Indication: CARDIAC DISORDER
     Dosage: 2 DF (20 MG), QD (AT NIGHT)
     Route: 048
     Dates: start: 201702
  15. METOPROLOL. [Concomitant]
     Active Substance: METOPROLOL
     Indication: HYPERTENSION
     Dosage: (1/4) 100 MG, Q12H
     Route: 048
     Dates: start: 201805
  16. METOPROLOL. [Concomitant]
     Active Substance: METOPROLOL
     Dosage: 0.5 DF (100 MG), Q24H (STARTED 2 YEARS AGO)
     Route: 048
  17. LINAGLIPTIN [Concomitant]
     Active Substance: LINAGLIPTIN
     Indication: DIABETES MELLITUS
     Dosage: 5 MG, QD (BEFORE EATING)
     Route: 048
  18. ACETYLSALICYLIC ACID [Concomitant]
     Active Substance: ASPIRIN
     Indication: CARDIOVASCULAR DISORDER
     Dosage: 0.5 DF (300 MG TABLET), QD, STARTED 3 YEARS AGO
     Route: 065
  19. ENTRESTO [Suspect]
     Active Substance: SACUBITRIL\VALSARTAN
     Indication: CARDIAC FAILURE
     Dosage: 1 DF (49 MG OF SACUBITRIL AND 51 MG OF VALSARTAN), BID
     Route: 048
  20. ENTRESTO [Suspect]
     Active Substance: SACUBITRIL\VALSARTAN
     Indication: HYPERTENSION
     Dosage: 50 MG, BID
     Route: 048
     Dates: start: 201702
  21. ENTRESTO [Suspect]
     Active Substance: SACUBITRIL\VALSARTAN
     Dosage: 0.5 DF (100 MG), BID
     Route: 048
     Dates: start: 201806
  22. ATENOLOL. [Concomitant]
     Active Substance: ATENOLOL
     Indication: BLOOD PRESSURE ABNORMAL
     Dosage: 1 DF, QD (START DATE: 1 YEAR AGO)
     Route: 048
     Dates: end: 20180529
  23. METOPROLOL. [Concomitant]
     Active Substance: METOPROLOL
     Dosage: 0.75 DF (3/4 OF 100 MG TABLET), QD (IN THE MORNING)
     Route: 048

REACTIONS (42)
  - Glucose tolerance impaired [Not Recovered/Not Resolved]
  - Syncope [Unknown]
  - Renal failure [Unknown]
  - Respiratory disorder [Recovered/Resolved]
  - Restlessness [Unknown]
  - Headache [Not Recovered/Not Resolved]
  - Blood pressure decreased [Recovered/Resolved]
  - Wrong technique in product usage process [Not Recovered/Not Resolved]
  - Arrhythmia [Not Recovered/Not Resolved]
  - Arthralgia [Not Recovered/Not Resolved]
  - Movement disorder [Not Recovered/Not Resolved]
  - Renal disorder [Unknown]
  - Hyperhidrosis [Unknown]
  - Feeling abnormal [Unknown]
  - Loss of consciousness [Unknown]
  - Visual impairment [Unknown]
  - Diaphragmatic disorder [Unknown]
  - Chest discomfort [Unknown]
  - Cardiac disorder [Not Recovered/Not Resolved]
  - Eye swelling [Unknown]
  - Pain in extremity [Not Recovered/Not Resolved]
  - Ligament sprain [Not Recovered/Not Resolved]
  - Discomfort [Not Recovered/Not Resolved]
  - Weight increased [Unknown]
  - Fatigue [Not Recovered/Not Resolved]
  - Asthenia [Recovered/Resolved]
  - Joint swelling [Not Recovered/Not Resolved]
  - Fall [Unknown]
  - Cardiomegaly [Unknown]
  - Tendonitis [Not Recovered/Not Resolved]
  - Abdominal distension [Unknown]
  - Head discomfort [Unknown]
  - Blood potassium decreased [Unknown]
  - Product prescribing error [Unknown]
  - Micturition frequency decreased [Unknown]
  - Arrhythmia [Recovered/Resolved]
  - Disease progression [Unknown]
  - Insomnia [Not Recovered/Not Resolved]
  - Limb discomfort [Not Recovered/Not Resolved]
  - Muscle contractions involuntary [Unknown]
  - Cardiac failure [Unknown]
  - Peripheral swelling [Unknown]

NARRATIVE: CASE EVENT DATE: 20180417
